FAERS Safety Report 16049442 (Version 2)
Quarter: 2019Q1

REPORT INFORMATION
  Report Type: Spontaneous
  Country: US (occurrence: US)
  Receive Date: 20190307
  Receipt Date: 20190329
  Transmission Date: 20190418
  Serious: Yes (Other)
  Sender: FDA-Public Use
  Company Number: US-VIFOR (INTERNATIONAL) INC.-VIT-2019-01995

PATIENT
  Age: 64 Year
  Sex: Female
  Weight: 101.5 kg

DRUGS (12)
  1. BUMEX [Concomitant]
     Active Substance: BUMETANIDE
  2. SYNTHROID [Concomitant]
     Active Substance: LEVOTHYROXINE SODIUM
  3. DILTIAZEM HCL [Concomitant]
     Active Substance: DILTIAZEM HYDROCHLORIDE
  4. AURYXIA [Concomitant]
     Active Substance: TETRAFERRIC TRICITRATE DECAHYDRATE
  5. VELTASSA [Suspect]
     Active Substance: PATIROMER
  6. ELIQUIS [Concomitant]
     Active Substance: APIXABAN
  7. MELATONIN [Concomitant]
     Active Substance: MELATONIN
  8. NEURONTIN [Concomitant]
     Active Substance: GABAPENTIN
  9. ASPIRIN. [Concomitant]
     Active Substance: ASPIRIN
  10. VELTASSA [Suspect]
     Active Substance: PATIROMER
     Indication: HYPERKALAEMIA
     Route: 048
     Dates: start: 20180802
  11. COREG [Concomitant]
     Active Substance: CARVEDILOL
  12. GLIMEPIRIDE. [Concomitant]
     Active Substance: GLIMEPIRIDE

REACTIONS (6)
  - Blood potassium increased [Unknown]
  - Off label use [Unknown]
  - Abdominal pain upper [Unknown]
  - Nausea [Unknown]
  - Atrial fibrillation [Recovered/Resolved]
  - Feeling abnormal [Unknown]

NARRATIVE: CASE EVENT DATE: 2018
